FAERS Safety Report 24634728 (Version 2)
Quarter: 2024Q4

REPORT INFORMATION
  Report Type: Spontaneous
  Country: US (occurrence: US)
  Receive Date: 20241119
  Receipt Date: 20241219
  Transmission Date: 20250115
  Serious: No
  Sender: ROCHE
  Company Number: US-ROCHE-10000127647

PATIENT
  Age: 63 Year
  Sex: Female
  Weight: 62.14 kg

DRUGS (1)
  1. KADCYLA [Suspect]
     Active Substance: ADO-TRASTUZUMAB EMTANSINE
     Indication: Breast cancer
     Dosage: LAST DOSE TAKEN ON 25-OCT-2024
     Route: 042
     Dates: start: 20240614

REACTIONS (4)
  - Visual impairment [Not Recovered/Not Resolved]
  - Dry eye [Unknown]
  - Cataract [Not Recovered/Not Resolved]
  - Corneal disorder [Not Recovered/Not Resolved]

NARRATIVE: CASE EVENT DATE: 20240701
